FAERS Safety Report 15695062 (Version 1)
Quarter: 2018Q4

REPORT INFORMATION
  Report Type: Spontaneous
  Country: US (occurrence: US)
  Receive Date: 20181206
  Receipt Date: 20181206
  Transmission Date: 20190205
  Serious: Yes (Other)
  Sender: FDA-Public Use
  Company Number: US-NOVOPROD-634115

PATIENT
  Sex: Female

DRUGS (1)
  1. XULTOPHY 100/3.6 [Suspect]
     Active Substance: INSULIN DEGLUDEC\LIRAGLUTIDE
     Indication: TYPE 2 DIABETES MELLITUS
     Dosage: 34 U, QD
     Route: 058
     Dates: start: 201707, end: 20181116

REACTIONS (1)
  - Renal injury [Recovering/Resolving]

NARRATIVE: CASE EVENT DATE: 20181029
